FAERS Safety Report 7102977-2 (Version None)
Quarter: 2010Q4

REPORT INFORMATION
  Report Type: 
  Country: None (occurrence: None)
  Receive Date: 20101115
  Receipt Date: 20101001
  Transmission Date: 20110411
  Serious: No
  Sender: FDA-Public Use
  Company Number: US-BAYER-201021973BCC

PATIENT
  Age: 58 Year
  Sex: Female
  Weight: 51 kg

DRUGS (7)
  1. ALEVE (CAPLET) [Suspect]
     Indication: PAIN
     Dosage: TOTAL DAILY DOSE: 1100 MG  UNIT DOSE: 220 MG
     Route: 048
     Dates: start: 20100901
  2. RISPERDAL CONSTA [Concomitant]
     Dosage: SHOT EVERY 2 WEEKS
  3. CELEXA [Concomitant]
  4. COGENTIN [Concomitant]
  5. TRAZODONE [Concomitant]
  6. VALIUM [Concomitant]
  7. REQUIP [Concomitant]

REACTIONS (1)
  - CONFUSIONAL STATE [None]
